FAERS Safety Report 8542149-8 (Version None)
Quarter: 2012Q3

REPORT INFORMATION
  Report Type: 
  Country: None (occurrence: None)
  Receive Date: 20120726
  Receipt Date: 20111021
  Transmission Date: 20120928
  Serious: No
  Sender: FDA-Public Use
  Company Number: US-ASTRAZENECA-2011SE63706

PATIENT
  Age: 53 Year
  Sex: Male
  Weight: 79.4 kg

DRUGS (7)
  1. PERCUSAD [Concomitant]
  2. SEROQUEL XR [Suspect]
     Indication: DEPRESSION
     Route: 048
  3. SEROQUEL XR [Suspect]
     Indication: PSYCHOTIC DISORDER
     Route: 048
  4. SEROQUEL XR [Suspect]
     Indication: MENTAL DISORDER
     Route: 048
  5. SEROQUEL XR [Suspect]
     Route: 048
  6. VOLTARIN CREAM [Concomitant]
     Indication: PAIN
  7. AMBIEN [Concomitant]
     Indication: SLEEP DISORDER

REACTIONS (3)
  - AGITATION [None]
  - DEPRESSION [None]
  - DRUG DOSE OMISSION [None]
